FAERS Safety Report 16228223 (Version 1)
Quarter: 2019Q2

REPORT INFORMATION
  Report Type: Spontaneous
  Country: US (occurrence: US)
  Receive Date: 20190423
  Receipt Date: 20190423
  Transmission Date: 20190711
  Serious: No
  Sender: FDA-Public Use
  Company Number: US-PURDUE-USA-2019-0145980

PATIENT
  Sex: Female
  Weight: 47.62 kg

DRUGS (10)
  1. OXYCODONE HYDROCHLORIDE (SIMILAR TO NDA 22-272) [Suspect]
     Active Substance: OXYCODONE HYDROCHLORIDE
     Indication: HEADACHE
     Dosage: UNK
     Route: 048
  2. TRAZODONE [Concomitant]
     Active Substance: TRAZODONE HYDROCHLORIDE
     Indication: SLEEP DISORDER
     Dosage: 100 MG, HS
     Route: 048
     Dates: start: 2015
  3. BOTOX [Concomitant]
     Active Substance: ONABOTULINUMTOXINA
     Indication: MIGRAINE
     Dosage: INJECTION
     Route: 065
  4. ATENOLOL. [Concomitant]
     Active Substance: ATENOLOL
     Indication: HYPERTENSION
  5. OXYCONTIN [Concomitant]
     Active Substance: OXYCODONE HYDROCHLORIDE
     Indication: PAIN
     Dosage: 20 MG, Q12H
     Route: 048
     Dates: start: 2016
  6. RELPAX [Concomitant]
     Active Substance: ELETRIPTAN HYDROBROMIDE
     Indication: MIGRAINE
     Route: 065
  7. ATENOLOL. [Concomitant]
     Active Substance: ATENOLOL
     Indication: PAIN
     Dosage: 25 MG, DAILY
     Route: 048
     Dates: start: 2012
  8. SUMATRIPTAN. [Suspect]
     Active Substance: SUMATRIPTAN
     Indication: MIGRAINE
     Dosage: (2X100 MG)200 MG, UNK
     Route: 065
  9. PROLIA [Concomitant]
     Active Substance: DENOSUMAB
     Indication: BONE DENSITY ABNORMAL
     Dosage: UNK (INFUSION YEARLY)
     Route: 065
     Dates: start: 2014
  10. LEXAPRO [Concomitant]
     Active Substance: ESCITALOPRAM OXALATE
     Indication: DEPRESSED MOOD
     Dosage: 20 MG, UNK
     Route: 048
     Dates: start: 2014

REACTIONS (1)
  - Drug ineffective [Unknown]
